FAERS Safety Report 5095950-X (Version None)
Quarter: 2006Q3

REPORT INFORMATION
  Report Type: 
  Country: None (occurrence: None)
  Receive Date: 20060905
  Receipt Date: 20060829
  Transmission Date: 20061208
  Serious: Yes (Death)
  Sender: FDA-Public Use
  Company Number: US-BRACCO-BDI-008589

PATIENT
  Sex: Male

DRUGS (2)
  1. GASTROGRAFIN [Suspect]
     Indication: GUN SHOT WOUND
     Route: 048
  2. GASTROGRAFIN [Suspect]
     Indication: X-RAY GASTROINTESTINAL TRACT
     Route: 048

REACTIONS (4)
  - DRUG ADMINISTRATION ERROR [None]
  - IATROGENIC INJURY [None]
  - INCORRECT ROUTE OF DRUG ADMINISTRATION [None]
  - WRONG TECHNIQUE IN DRUG USAGE PROCESS [None]
